FAERS Safety Report 19456280 (Version 6)
Quarter: 2021Q4

REPORT INFORMATION
  Report Type: Report from Study
  Country: US (occurrence: US)
  Receive Date: 20210624
  Receipt Date: 20211012
  Transmission Date: 20220303
  Serious: Yes (Hospitalization)
  Sender: FDA-Public Use
  Company Number: US-NOVARTISPH-NVSC2021US132600

PATIENT
  Age: 78 Year
  Sex: Female

DRUGS (2)
  1. ENTRESTO [Suspect]
     Active Substance: SACUBITRIL\VALSARTAN
     Indication: Cardiac failure
     Dosage: UNK
     Route: 065
     Dates: start: 20210525
  2. SPIRONOLACTONE [Suspect]
     Active Substance: SPIRONOLACTONE
     Indication: Product used for unknown indication
     Dosage: UNK
     Route: 065

REACTIONS (12)
  - Sepsis [Recovered/Resolved]
  - Fall [Recovered/Resolved]
  - Hypoacusis [Unknown]
  - Apathy [Not Recovered/Not Resolved]
  - Arthritis [Not Recovered/Not Resolved]
  - Back pain [Not Recovered/Not Resolved]
  - Insomnia [Recovering/Resolving]
  - Back injury [Recovering/Resolving]
  - Alopecia [Not Recovered/Not Resolved]
  - Hypotension [Not Recovered/Not Resolved]
  - Asthenia [Recovering/Resolving]
  - Product dose omission issue [Not Recovered/Not Resolved]

NARRATIVE: CASE EVENT DATE: 20210501
